FAERS Safety Report 18916045 (Version 2)
Quarter: 2021Q3

REPORT INFORMATION
  Report Type: Spontaneous
  Country: CA (occurrence: CA)
  Receive Date: 20210219
  Receipt Date: 20210826
  Transmission Date: 20211014
  Serious: Yes (Other)
  Sender: FDA-Public Use
  Company Number: CA-MERZ PHARMACEUTICALS GMBH-21-00617

PATIENT
  Age: 76 Year
  Sex: Female

DRUGS (16)
  1. DEPO?MEDROL [Concomitant]
     Active Substance: METHYLPREDNISOLONE ACETATE
  2. MOMETASONE [Concomitant]
     Active Substance: MOMETASONE
  3. BOTOX [Suspect]
     Active Substance: ONABOTULINUMTOXINA
     Indication: MIGRAINE
  4. CYPROHEPTADINE. [Suspect]
     Active Substance: CYPROHEPTADINE
     Indication: MIGRAINE
     Dosage: 4 MG
  5. MEMANTINE HYDROCHLORIDE. [Concomitant]
     Active Substance: MEMANTINE HYDROCHLORIDE
     Indication: MIGRAINE
     Dosage: 10 MG
  6. BETAHISTINE [Concomitant]
     Active Substance: BETAHISTINE
  7. GABAPENTIN. [Concomitant]
     Active Substance: GABAPENTIN
  8. LORAZEPAM. [Concomitant]
     Active Substance: LORAZEPAM
  9. ALMOTRIPTAN. [Suspect]
     Active Substance: ALMOTRIPTAN
     Indication: MIGRAINE
     Dosage: 12.5 MG
  10. CANDESARTAN CILEXETIL. [Suspect]
     Active Substance: CANDESARTAN CILEXETIL
     Indication: MIGRAINE
     Dosage: 4 MG
     Route: 048
  11. RIZATRIPTAN BENZOATE. [Suspect]
     Active Substance: RIZATRIPTAN BENZOATE
     Indication: MIGRAINE
     Dosage: 10 MG
  12. ERYTHROMYCIN ESTOLATE. [Concomitant]
     Active Substance: ERYTHROMYCIN ESTOLATE
  13. CYCLOMEN [Concomitant]
     Active Substance: DANAZOL
  14. FAMOTIDINE. [Concomitant]
     Active Substance: FAMOTIDINE
  15. AZITHROMYCIN ANHYDROUS. [Concomitant]
     Active Substance: AZITHROMYCIN ANHYDROUS
  16. PANTOPRAZOLE [Concomitant]
     Active Substance: PANTOPRAZOLE

REACTIONS (7)
  - Anaphylactic reaction [Recovered/Resolved]
  - Muscle spasms [Recovered/Resolved]
  - Periorbital oedema [Recovered/Resolved]
  - Drug ineffective for unapproved indication [Unknown]
  - Drug intolerance [Unknown]
  - Product use in unapproved indication [Unknown]
  - Periorbital swelling [Recovered/Resolved]
